FAERS Safety Report 21132920 (Version 2)
Quarter: 2022Q3

REPORT INFORMATION
  Report Type: Report from Study
  Country: DE (occurrence: DE)
  Receive Date: 20220726
  Receipt Date: 20220830
  Transmission Date: 20221027
  Serious: Yes (Hospitalization)
  Sender: FDA-Public Use
  Company Number: DE-MYLANLABS-2022M1051591

PATIENT
  Sex: Female

DRUGS (4)
  1. CELECOXIB [Suspect]
     Active Substance: CELECOXIB
     Indication: Axial spondyloarthritis
     Dosage: 400 MILLIGRAM
     Route: 065
     Dates: start: 20200219
  2. ACEMETACIN [Suspect]
     Active Substance: ACEMETACIN
     Indication: Axial spondyloarthritis
     Dosage: 180 MILLIGRAM
     Route: 065
     Dates: start: 20170720
  3. ACEMETACIN [Suspect]
     Active Substance: ACEMETACIN
     Dosage: 90 MILLIGRAM
     Route: 065
     Dates: start: 20170720, end: 20200210
  4. ACEMETACIN [Suspect]
     Active Substance: ACEMETACIN
     Dosage: 90 MILLIGRAM
     Route: 065
     Dates: start: 20200715

REACTIONS (2)
  - Fibromyalgia [Unknown]
  - Spinal osteoarthritis [Unknown]

NARRATIVE: CASE EVENT DATE: 20200310
